FAERS Safety Report 22860343 (Version 2)
Quarter: 2023Q4

REPORT INFORMATION
  Report Type: Spontaneous
  Country: GB (occurrence: GB)
  Receive Date: 20230824
  Receipt Date: 20231108
  Transmission Date: 20240110
  Serious: Yes (Other)
  Sender: FDA-Public Use
  Company Number: GB-MYLANLABS-2023M1042784

PATIENT
  Age: 56 Year
  Sex: Male

DRUGS (1)
  1. CLOZARIL [Suspect]
     Active Substance: CLOZAPINE
     Indication: Schizophrenia
     Dosage: UNK
     Route: 048
     Dates: start: 20100927

REACTIONS (4)
  - Lung carcinoma cell type unspecified stage III [Unknown]
  - Infection [Unknown]
  - Mean cell haemoglobin concentration decreased [Unknown]
  - Contraindicated product prescribed [Unknown]
